FAERS Safety Report 9364572 (Version 2)
Quarter: 2013Q3

REPORT INFORMATION
  Report Type: Report from Study
  Country: US (occurrence: US)
  Receive Date: 20130624
  Receipt Date: 20130820
  Transmission Date: 20140515
  Serious: Yes (Other)
  Sender: FDA-Public Use
  Company Number: PHEH2013US013253

PATIENT
  Sex: Male

DRUGS (2)
  1. GLEEVEC [Suspect]
     Indication: CHRONIC MYELOID LEUKAEMIA
     Dosage: 100 MG, QD
     Route: 048
  2. GLEEVEC [Suspect]
     Indication: EOSINOPHILIA
     Dosage: UNK UKN, UNK
     Route: 048

REACTIONS (5)
  - Throat tightness [Unknown]
  - Gastric ulcer [Unknown]
  - Throat irritation [Unknown]
  - Pharyngeal ulceration [Unknown]
  - Hypophagia [Unknown]
